FAERS Safety Report 9264834 (Version 1)
Quarter: 2013Q2

REPORT INFORMATION
  Report Type: Spontaneous
  Country: US (occurrence: None)
  Receive Date: 20130430
  Receipt Date: 20130430
  Transmission Date: 20140414
  Serious: Yes (Hospitalization, Disabling)
  Sender: FDA-Public Use
  Company Number: None

PATIENT
  Age: 80 Year
  Sex: Male
  Weight: 73.94 kg

DRUGS (2)
  1. FOSAMAX [Suspect]
     Indication: OSTEOPOROSIS
     Dosage: 70MG  ONCE WEEKLY
     Dates: start: 20070924, end: 20110816
  2. RECLAST [Suspect]
     Indication: OSTEOPOROSIS
     Dosage: ANNUALLY
     Dates: start: 20110919

REACTIONS (3)
  - Femur fracture [None]
  - Fall [None]
  - Pathological fracture [None]
